FAERS Safety Report 22232369 (Version 6)
Quarter: 2023Q4

REPORT INFORMATION
  Report Type: Report from Study
  Country: CA (occurrence: CA)
  Receive Date: 20230420
  Receipt Date: 20231208
  Transmission Date: 20240109
  Serious: Yes (Hospitalization)
  Sender: FDA-Public Use
  Company Number: CA-JNJFOC-20221033856

PATIENT
  Age: 62 Year
  Sex: Male
  Weight: 80.812 kg

DRUGS (3)
  1. SIMPONI [Suspect]
     Active Substance: GOLIMUMAB
     Indication: Ankylosing spondylitis
     Route: 058
  2. SIMPONI [Suspect]
     Active Substance: GOLIMUMAB
     Route: 058
  3. SIMPONI [Suspect]
     Active Substance: GOLIMUMAB
     Route: 058

REACTIONS (6)
  - Chest pain [Unknown]
  - Coronary artery bypass [Recovering/Resolving]
  - Infection [Unknown]
  - Urinary tract infection [Unknown]
  - Dysuria [Unknown]
  - Inappropriate schedule of product administration [Unknown]

NARRATIVE: CASE EVENT DATE: 20221015
